FAERS Safety Report 5927174-5 (Version None)
Quarter: 2008Q4

REPORT INFORMATION
  Report Type: 
  Country: None (occurrence: None)
  Receive Date: 20081022
  Receipt Date: 20081010
  Transmission Date: 20090506
  Serious: Yes (Other)
  Sender: FDA-Public Use
  Company Number: BR-PFIZER INC-2008046290

PATIENT
  Sex: Female
  Weight: 53.5 kg

DRUGS (12)
  1. CHAMPIX [Suspect]
     Indication: TOBACCO ABUSE
     Route: 048
     Dates: start: 20071215
  2. SPIRIVA [Concomitant]
     Route: 065
  3. SERETIDE [Concomitant]
     Route: 065
  4. COZAAR [Concomitant]
     Route: 065
  5. AMLODIPINE [Concomitant]
     Route: 065
  6. VYTORIN [Concomitant]
  7. ALPRAZOLAM [Concomitant]
  8. DORMONID [Concomitant]
  9. ADALAT [Concomitant]
     Dates: start: 20060101, end: 20071201
  10. ACETYLSALICYLIC ACID SRT [Concomitant]
     Dates: start: 20040101
  11. FLUOXETINE [Concomitant]
     Dates: start: 20040101
  12. OMEPRAZOLE [Concomitant]
     Dates: start: 20030101

REACTIONS (3)
  - FALL [None]
  - LIMB OPERATION [None]
  - SYNCOPE [None]
